FAERS Safety Report 13116754 (Version 2)
Quarter: 2017Q1

REPORT INFORMATION
  Report Type: Spontaneous
  Country: ES (occurrence: ES)
  Receive Date: 20170116
  Receipt Date: 20170209
  Transmission Date: 20170428
  Serious: Yes (Death, Hospitalization, Other)
  Sender: FDA-Public Use
  Company Number: ES-BRISTOL-MYERS SQUIBB COMPANY-BMS-2017-002065

PATIENT
  Age: 85 Year
  Sex: Female

DRUGS (5)
  1. BARACLUDE [Suspect]
     Active Substance: ENTECAVIR
     Indication: ANTIVIRAL PROPHYLAXIS
     Dosage: 0.5 MG, QD
     Route: 048
     Dates: start: 20150523, end: 20150524
  2. OMEPRAZOLE. [Concomitant]
     Active Substance: OMEPRAZOLE
     Indication: PROPHYLAXIS AGAINST GASTROINTESTINAL ULCER
     Dosage: 20 MG, QD
     Route: 048
     Dates: start: 20150504
  3. FUROSEMIDE. [Concomitant]
     Active Substance: FUROSEMIDE
     Indication: HYPERTENSION
     Dosage: 20 MG, QD
     Route: 048
     Dates: start: 20150504
  4. VIREAD [Suspect]
     Active Substance: TENOFOVIR DISOPROXIL FUMARATE
     Indication: ANTIVIRAL PROPHYLAXIS
     Dosage: 123 MG, QD
     Route: 048
     Dates: start: 20150504, end: 20150522
  5. GENOXAL [Suspect]
     Active Substance: CYCLOPHOSPHAMIDE
     Indication: NON-HODGKIN^S LYMPHOMA
     Dosage: 1 DF, QD
     Route: 048
     Dates: start: 20150504, end: 20150524

REACTIONS (3)
  - Cardiac failure congestive [Fatal]
  - Sinus node dysfunction [Fatal]
  - Product use issue [Unknown]

NARRATIVE: CASE EVENT DATE: 20150524
